FAERS Safety Report 4372420-5 (Version None)
Quarter: 2004Q2

REPORT INFORMATION
  Report Type: 
  Country: None (occurrence: None)
  Receive Date: 20040526
  Receipt Date: 20040514
  Transmission Date: 20050107
  Serious: Yes (Other)
  Sender: FDA-Public Use
  Company Number: CA-JNJFOC-20040503791

PATIENT

DRUGS (3)
  1. TOPAMAX [Suspect]
     Dosage: ORAL
     Route: 048
  2. XYLOCAINE [Suspect]
     Dosage: 2 ML, IN 1 DAY
  3. TEGRETOL [Concomitant]

REACTIONS (1)
  - RHABDOMYOLYSIS [None]
